FAERS Safety Report 6225466-6 (Version None)
Quarter: 2009Q2

REPORT INFORMATION
  Report Type: 
  Country: None (occurrence: None)
  Receive Date: 20090612
  Receipt Date: 20090420
  Transmission Date: 20091009
  Serious: No
  Sender: FDA-Public Use
  Company Number: US-ABBOTT-09P-163-0569212-00

PATIENT
  Sex: Male
  Weight: 93.07 kg

DRUGS (4)
  1. HUMIRA [Suspect]
     Indication: PSORIASIS
     Route: 058
     Dates: start: 20090304, end: 20090304
  2. HUMIRA [Suspect]
     Route: 058
     Dates: start: 20090318, end: 20090318
  3. HUMIRA [Suspect]
     Route: 058
     Dates: start: 20090325
  4. BENICAR [Concomitant]
     Indication: HYPERTENSION
     Dates: start: 20080101

REACTIONS (1)
  - RASH [None]
